FAERS Safety Report 11307287 (Version 1)
Quarter: 2015Q3

REPORT INFORMATION
  Report Type: Spontaneous
  Country: US (occurrence: US)
  Receive Date: 20150723
  Receipt Date: 20150723
  Transmission Date: 20151125
  Serious: No
  Sender: FDA-Public Use
  Company Number: US-BAUSCH-SP08922

PATIENT
  Age: 89 Year
  Sex: Male

DRUGS (1)
  1. XIFAXAN [Suspect]
     Active Substance: RIFAXIMIN
     Indication: LIVER DISORDER
     Route: 048

REACTIONS (4)
  - Oedema peripheral [Unknown]
  - Fatigue [Unknown]
  - Ascites [Unknown]
  - Nausea [Unknown]
